FAERS Safety Report 4667499-7 (Version None)
Quarter: 2005Q2

REPORT INFORMATION
  Report Type: 
  Country: None (occurrence: None)
  Receive Date: 20050519
  Receipt Date: 20050519
  Transmission Date: 20051028
  Serious: Yes (Life-Threatening, Hospitalization)
  Sender: FDA-Public Use
  Company Number: None

PATIENT
  Age: 47 Year
  Sex: Female

DRUGS (9)
  1. TEQUIN [Suspect]
     Indication: URINARY TRACT INFECTION
     Dosage: 400MG   QAM   INTRAVENOU
     Route: 042
     Dates: start: 20050403, end: 20050406
  2. PROTONIX [Concomitant]
  3. INSULIN [Concomitant]
  4. ATIVAN [Concomitant]
  5. METOPROLOL [Concomitant]
  6. COMBIVENT MDI [Concomitant]
  7. ASPIRIN [Concomitant]
  8. PHENERGAN [Concomitant]
  9. TYLENOL (CAPLET) [Concomitant]

REACTIONS (8)
  - ASTHENIA [None]
  - ELECTROCARDIOGRAM QT CORRECTED INTERVAL PROLONGED [None]
  - HYPERHIDROSIS [None]
  - HYPERTENSION [None]
  - RESPIRATORY ACIDOSIS [None]
  - RESPIRATORY FAILURE [None]
  - SOMNOLENCE [None]
  - TACHYCARDIA [None]
